FAERS Safety Report 9789280 (Version 1)
Quarter: 2013Q4

REPORT INFORMATION
  Report Type: Spontaneous
  Country: DK (occurrence: DK)
  Receive Date: 20131231
  Receipt Date: 20131231
  Transmission Date: 20140711
  Serious: Yes (Life-Threatening, Hospitalization)
  Sender: FDA-Public Use
  Company Number: DK-WATSON-2013-23642

PATIENT
  Age: 59 Year
  Sex: Female

DRUGS (3)
  1. PREDNISOLONE (UNKNOWN) [Suspect]
     Indication: OESOPHAGEAL CARCINOMA
     Dosage: 50 MG, DAILY
     Route: 065
  2. PREDNISOLONE (UNKNOWN) [Suspect]
     Dosage: 37.5 MG, DAILY
     Route: 065
  3. GLUCOSE [Suspect]
     Indication: HYPOPHAGIA
     Dosage: 1 L, TOTAL
     Route: 042

REACTIONS (2)
  - Hyperglycaemic hyperosmolar nonketotic syndrome [Recovering/Resolving]
  - Cardiac arrest [Recovered/Resolved]
